FAERS Safety Report 7271123-7 (Version None)
Quarter: 2011Q1

REPORT INFORMATION
  Report Type: 
  Country: None (occurrence: None)
  Receive Date: 20110202
  Receipt Date: 20110124
  Transmission Date: 20110831
  Serious: Yes (Death, Hospitalization, Other)
  Sender: FDA-Public Use
  Company Number: SK-PFIZER INC-2011012767

PATIENT
  Age: 54 Year
  Sex: Male

DRUGS (4)
  1. TEMSIROLIMUS [Suspect]
     Dosage: 175 MG, UNK
     Dates: end: 20101101
  2. TEMSIROLIMUS [Suspect]
     Dosage: 90 MG, UNK
  3. TEMSIROLIMUS [Suspect]
     Dosage: 50 MG, UNK
  4. TEMSIROLIMUS [Suspect]
     Dosage: 30 MG, UNK

REACTIONS (4)
  - NON-HODGKIN'S LYMPHOMA [None]
  - HEPATOMEGALY [None]
  - MULTI-ORGAN FAILURE [None]
  - PNEUMONIA [None]
